FAERS Safety Report 6604053-1 (Version None)
Quarter: 2010Q1

REPORT INFORMATION
  Report Type: 
  Country: None (occurrence: None)
  Receive Date: 20100226
  Receipt Date: 20090421
  Transmission Date: 20100710
  Serious: No
  Sender: FDA-Public Use
  Company Number: A0781123A

PATIENT
  Age: 54 Year
  Sex: Female

DRUGS (10)
  1. LAMICTAL CD [Suspect]
     Indication: DRUG USE FOR UNKNOWN INDICATION
     Dosage: 1TAB PER DAY
     Route: 048
     Dates: start: 20080401, end: 20080922
  2. PROVIGIL [Suspect]
     Dosage: 200MG PER DAY
     Route: 048
     Dates: start: 20080301, end: 20080922
  3. METFORMIN HYDROCHLORIDE [Concomitant]
     Dosage: 1000MG TWICE PER DAY
     Route: 048
     Dates: start: 19980101
  4. JANUVIA [Concomitant]
     Route: 048
     Dates: start: 20070101
  5. ASPIRIN [Concomitant]
     Indication: ANTICOAGULANT THERAPY
     Dosage: 81MG PER DAY
     Route: 048
     Dates: start: 19940101
  6. DIOVAN [Concomitant]
     Route: 048
     Dates: start: 20040101
  7. VYTORIN [Concomitant]
     Indication: BLOOD CHOLESTEROL INCREASED
     Dosage: 20MG PER DAY
     Route: 048
     Dates: start: 20000101
  8. CLONAZEPAM [Concomitant]
     Dosage: 7.5MG PER DAY
     Route: 048
     Dates: start: 19790101
  9. SINGULAIR [Concomitant]
     Indication: ASTHMA
     Dosage: 10MG PER DAY
     Route: 048
     Dates: start: 20030101
  10. SYNTHROID [Concomitant]
     Indication: HYPOTHYROIDISM
     Dosage: 10MG PER DAY
     Route: 048
     Dates: start: 19850101

REACTIONS (1)
  - ALOPECIA [None]
